FAERS Safety Report 11397859 (Version 6)
Quarter: 2015Q4

REPORT INFORMATION
  Report Type: Spontaneous
  Country: US (occurrence: US)
  Receive Date: 20150819
  Receipt Date: 20151211
  Transmission Date: 20160304
  Serious: Yes (Hospitalization, Other)
  Sender: FDA-Public Use
  Company Number: US-ACTELION PHARMACEUTICALS US, INC.-A-NJ2015-122460

PATIENT
  Age: 64 Year
  Sex: Male

DRUGS (30)
  1. VELETRI [Suspect]
     Active Substance: EPOPROSTENOL
     Indication: PULMONARY HYPERTENSION
     Dosage: 36 NG/KG, PER MIN
     Route: 042
     Dates: start: 20150616
  2. COUMADIN [Concomitant]
     Active Substance: WARFARIN SODIUM
     Dosage: 5 MG, UNK
     Route: 048
  3. PROTONIX [Concomitant]
     Active Substance: PANTOPRAZOLE SODIUM
     Dosage: 40 MG, UNK
  4. BENADRYL [Concomitant]
     Active Substance: DIPHENHYDRAMINE HYDROCHLORIDE
     Dosage: 25 MG, Q6HRS
  5. GLUCAGON. [Concomitant]
     Active Substance: GLUCAGON
     Dosage: 1 MG, UNK
  6. PANTOPRAZOLE [Concomitant]
     Active Substance: PANTOPRAZOLE SODIUM
     Dosage: 40 MG, UNK
     Route: 048
  7. LIPITOR [Concomitant]
     Active Substance: ATORVASTATIN CALCIUM
     Dosage: 10 MG, UNK
     Route: 048
  8. FLONASE [Concomitant]
     Active Substance: FLUTICASONE PROPIONATE
     Dosage: 50 MCG, PRN
  9. FUROSEMIDE. [Concomitant]
     Active Substance: FUROSEMIDE
     Dosage: 40 MG, Q12HRS
     Route: 042
  10. IMODIUM [Concomitant]
     Active Substance: LOPERAMIDE HYDROCHLORIDE
     Dosage: 2 MG,2 TABLETS AS NEEDED
  11. OXYGEN. [Concomitant]
     Active Substance: OXYGEN
  12. ENOXAPARIN [Concomitant]
     Active Substance: ENOXAPARIN
  13. INSULIN GLARGINE [Concomitant]
     Active Substance: INSULIN GLARGINE
  14. METFORMIN HCL [Concomitant]
     Active Substance: METFORMIN HYDROCHLORIDE
     Dosage: 500 MG, QAM
     Route: 048
  15. PSYLLIUM [Concomitant]
     Active Substance: PLANTAGO SEED
  16. VELETRI [Suspect]
     Active Substance: EPOPROSTENOL
     Dosage: 34 NG/KG, PER MIN
     Route: 042
     Dates: start: 2014
  17. BENZONATATE. [Concomitant]
     Active Substance: BENZONATATE
     Dosage: 100 MG, UNK
  18. BETACAROTENE [Concomitant]
     Active Substance: .BETA.-CAROTENE
     Dosage: 25000 U, UNK
  19. MAGNESIUM OXIDE. [Concomitant]
     Active Substance: MAGNESIUM OXIDE
     Dosage: 400 MG, UNK
  20. TRAMADOL. [Concomitant]
     Active Substance: TRAMADOL
     Dosage: 50 MG, TID, PRN
     Route: 048
  21. DEXTROSE. [Concomitant]
     Active Substance: DEXTROSE
     Dosage: 125 G, UNK
     Route: 042
  22. RIOCIGUAT [Concomitant]
     Active Substance: RIOCIGUAT
     Dosage: 0.5 MG, UNK
     Route: 048
     Dates: start: 2015
  23. EPOPROSTENOL. [Concomitant]
     Active Substance: EPOPROSTENOL
     Dosage: 6 MG, UNK
     Route: 042
  24. SUCRALFATE. [Concomitant]
     Active Substance: SUCRALFATE
     Dosage: 1 GM/10 ML SUSPENSION
  25. FLUTICASONE PROPIONATE. [Concomitant]
     Active Substance: FLUTICASONE PROPIONATE
     Dosage: 50 UNK, UNK
  26. KLOR-CON [Concomitant]
     Active Substance: POTASSIUM CHLORIDE
     Dosage: 20 MEQ, UNK
  27. FERROUS SULFATE [Concomitant]
     Active Substance: FERROUS SULFATE\FERROUS SULFATE, DRIED
     Dosage: 325 MG, TID
     Route: 048
  28. FLOLAN [Concomitant]
     Active Substance: EPOPROSTENOL SODIUM
     Dosage: 36 UNK, UNK
  29. NAFTIN [Concomitant]
     Active Substance: NAFTIFINE HYDROCHLORIDE
     Route: 061
  30. INSULIN LISPRO [Concomitant]
     Active Substance: INSULIN LISPRO
     Dosage: 300 U/ 3 ML INJ

REACTIONS (41)
  - Haemorrhoids [Unknown]
  - Right ventricular failure [Unknown]
  - Oxygen saturation decreased [Unknown]
  - Hypoacusis [Recovering/Resolving]
  - Diarrhoea [Unknown]
  - Lung infection [Unknown]
  - Chronic gastrointestinal bleeding [Unknown]
  - Hypoxia [Unknown]
  - Diabetes mellitus [Recovering/Resolving]
  - Epistaxis [Recovered/Resolved]
  - Pulmonary endarterectomy [Not Recovered/Not Resolved]
  - Cardiogenic shock [Unknown]
  - Chronic kidney disease [Unknown]
  - Lower gastrointestinal haemorrhage [Unknown]
  - Thrombocytopenia [Recovering/Resolving]
  - Eustachian tube dysfunction [Recovering/Resolving]
  - Dyspnoea exertional [Unknown]
  - Device occlusion [Unknown]
  - Pneumonia [Recovering/Resolving]
  - Condition aggravated [Unknown]
  - Chronic right ventricular failure [Recovering/Resolving]
  - Productive cough [Unknown]
  - Oedema peripheral [Unknown]
  - Clostridium difficile colitis [Recovered/Resolved]
  - Lung consolidation [Recovering/Resolving]
  - Hiatus hernia [Unknown]
  - Palpitations [Unknown]
  - Thrombosis [Unknown]
  - Gastrointestinal ulcer [Unknown]
  - Tachycardia [Unknown]
  - Blood creatine increased [Unknown]
  - Lymphadenopathy mediastinal [Unknown]
  - Lung infiltration [Recovering/Resolving]
  - Fluid overload [Unknown]
  - Acute respiratory failure [Unknown]
  - Dyspnoea paroxysmal nocturnal [Unknown]
  - Ulcer [Unknown]
  - Pneumonitis [Unknown]
  - Iron deficiency anaemia [Unknown]
  - Pleural effusion [Recovering/Resolving]
  - Pericardial effusion [Unknown]

NARRATIVE: CASE EVENT DATE: 201506
